FAERS Safety Report 15098300 (Version 1)
Quarter: 2018Q3

REPORT INFORMATION
  Report Type: Spontaneous
  Country: US (occurrence: US)
  Receive Date: 20180702
  Receipt Date: 20180702
  Transmission Date: 20181010
  Serious: Yes (Other)
  Sender: FDA-Public Use
  Company Number: US-ALLERGAN-1832608US

PATIENT
  Age: 54 Year
  Sex: Male

DRUGS (36)
  1. ATARAX [Concomitant]
     Active Substance: HYDROXYZINE HYDROCHLORIDE
     Indication: PRURITUS
     Dosage: 25 MG, TID (AS NEEDED)
     Route: 048
  2. LIDODERM [Concomitant]
     Active Substance: LIDOCAINE
     Dosage: 1 DF, QD
     Route: 062
  3. XARELTO [Concomitant]
     Active Substance: RIVAROXABAN
     Dosage: 20 MG, QD
     Route: 048
  4. NORVASC [Concomitant]
     Active Substance: AMLODIPINE BESYLATE
     Dosage: 5 MG, QD
     Route: 048
  5. WELLBUTRIN [Concomitant]
     Active Substance: BUPROPION HYDROCHLORIDE
     Dosage: 150 MG, QAM
     Route: 048
  6. LACTAID [Concomitant]
     Active Substance: LACTASE
     Dosage: 6000 UNITS, TID
     Route: 048
  7. THERAGRAN [Concomitant]
     Active Substance: VITAMINS
     Dosage: 1 DF, QD
     Route: 048
  8. SENEXON?S [Concomitant]
     Active Substance: DOCUSATE SODIUM\SENNOSIDES A AND B
     Dosage: 2 DF, QPM
     Route: 048
  9. TESTOSTERONE 0.075MG PCH [Suspect]
     Active Substance: TESTOSTERONE
     Indication: ANDROGEN DEFICIENCY
     Dosage: UNK
     Route: 065
  10. FESOTERODINE [Concomitant]
     Active Substance: FESOTERODINE
     Dosage: 8 MG, QD
     Route: 048
  11. FOLVITE [Concomitant]
     Active Substance: FOLIC ACID
     Dosage: 1 MG, QD
     Route: 048
  12. XYZAL [Concomitant]
     Active Substance: LEVOCETIRIZINE DIHYDROCHLORIDE
     Dosage: 5 MG, QD
     Route: 048
  13. TOPROL XL [Concomitant]
     Active Substance: METOPROLOL SUCCINATE
     Dosage: 25 MG, QD
     Route: 048
  14. TOPAMAX [Concomitant]
     Active Substance: TOPIRAMATE
     Indication: SEIZURE
     Dosage: 1 DF, QHS
     Route: 048
  15. TESTOSTERONE 0.075MG PCH [Suspect]
     Active Substance: TESTOSTERONE
     Dosage: 2 DF, QD
     Route: 065
  16. SINGULAIR [Concomitant]
     Active Substance: MONTELUKAST SODIUM
     Dosage: 1 DF, QPM
     Route: 048
  17. PRILOSEC [Concomitant]
     Active Substance: OMEPRAZOLE MAGNESIUM
     Dosage: 1 DF, QAM
     Route: 048
  18. UROCIT?K [Concomitant]
     Active Substance: POTASSIUM CITRATE
     Dosage: 20 MEQ, QHS
     Route: 048
  19. CAMPRAL [Suspect]
     Active Substance: ACAMPROSATE CALCIUM
     Indication: PRODUCT USED FOR UNKNOWN INDICATION
     Dosage: 2 DF, TID
     Route: 048
  20. ADVIL [Suspect]
     Active Substance: IBUPROFEN
     Indication: PRODUCT USED FOR UNKNOWN INDICATION
     Dosage: UNK, PRN
     Route: 065
  21. UROXATRAL [Concomitant]
     Active Substance: ALFUZOSIN HYDROCHLORIDE
     Dosage: 1 DF, QHS
     Route: 048
  22. DDAVP [Concomitant]
     Active Substance: DESMOPRESSIN ACETATE
     Dosage: 0.2 MG, QHS
     Route: 048
  23. DEPO?TESTOSTERONE [Concomitant]
     Active Substance: TESTOSTERONE CYPIONATE
     Dosage: UNK, EVERY 28 DAYS
     Route: 030
  24. TESTOSTERONE 0.075MG PCH [Suspect]
     Active Substance: TESTOSTERONE
     Dosage: UNK
     Route: 065
     Dates: start: 2014
  25. ZYRTEC [Concomitant]
     Active Substance: CETIRIZINE HYDROCHLORIDE
     Dosage: 10 MG, QHS
     Route: 048
  26. VITAMIN D3 [Concomitant]
     Active Substance: CHOLECALCIFEROL
     Dosage: 1 DF, QD
     Route: 048
  27. FLONASE [Concomitant]
     Active Substance: FLUTICASONE PROPIONATE
     Dosage: 2 DF, BID
     Route: 045
  28. KEPPRA [Concomitant]
     Active Substance: LEVETIRACETAM
     Dosage: 500 MG, UNK
     Route: 048
  29. NALTREXONE [Concomitant]
     Active Substance: NALTREXONE
     Dosage: 50 MG, QHS
     Route: 048
  30. PROTONIX [Concomitant]
     Active Substance: PANTOPRAZOLE SODIUM
     Dosage: 40 MG, QD
     Route: 048
  31. PROAIR HFA [Concomitant]
     Active Substance: ALBUTEROL SULFATE
     Indication: WHEEZING
     Dosage: 2 PUFFS, Q6HR (AS NEEDED)
     Route: 055
  32. COLACE [Concomitant]
     Active Substance: DOCUSATE SODIUM
     Dosage: 1?2 CAPSULES (100?200 MG TOTAL), BID
     Route: 048
  33. ZYPREXA [Concomitant]
     Active Substance: OLANZAPINE
     Dosage: 20 MG, QHS
     Route: 048
  34. DESYREL [Concomitant]
     Active Substance: TRAZODONE HYDROCHLORIDE
     Dosage: 2 DF, QHS
     Route: 048
  35. EFFEXOR [Concomitant]
     Active Substance: VENLAFAXINE HYDROCHLORIDE
     Dosage: UNK
  36. VOLTAREN [Concomitant]
     Active Substance: DICLOFENAC SODIUM
     Dosage: 2 G, 3 TIMES A WEEK
     Route: 061

REACTIONS (15)
  - Lethargy [Unknown]
  - Chills [None]
  - Urinary retention [None]
  - Hypoaesthesia [None]
  - Urinary tract infection [Unknown]
  - Intentional overdose [None]
  - Nephrolithiasis [None]
  - Blood urine present [None]
  - Suicide attempt [Unknown]
  - Refusal of treatment by patient [None]
  - Gastric disorder [None]
  - Urine odour abnormal [None]
  - Dysuria [None]
  - Benign prostatic hyperplasia [Unknown]
  - Liver disorder [None]

NARRATIVE: CASE EVENT DATE: 2014
